FAERS Safety Report 8840095 (Version 2)
Quarter: 2012Q4

REPORT INFORMATION
  Report Type: Spontaneous
  Country: US (occurrence: None)
  Receive Date: 20121011
  Receipt Date: 20121024
  Transmission Date: 20130627
  Serious: Yes (Other)
  Sender: FDA-Public Use
  Company Number: JPI-P-025535

PATIENT
  Age: 56 Year
  Sex: Male
  Weight: 97.07 kg

DRUGS (8)
  1. XYREM (500 MILLIGRAM/MILLILITERS, SOLUTION)(SODIUM OXYBATE) [Suspect]
     Indication: CATAPLEXY
     Dosage: 4.5 gm (2.25 gm, 2 in 1 D), Oral
     Route: 048
     Dates: start: 20051004
  2. XYREM (500 MILLIGRAM/MILLILITERS, SOLUTION)(SODIUM OXYBATE) [Suspect]
     Indication: CATAPLEXY
     Route: 048
  3. XYREM (500 MILLIGRAM/MILLILITERS, SOLUTION)(SODIUM OXYBATE) [Suspect]
     Indication: CATAPLEXY
     Dosage: 9 gm (4.5 gm 2 in 1 D), Oral
     Route: 048
     Dates: start: 20070202
  4. METHYLPHENIDATE HYDROCHLORIDE [Concomitant]
  5. MODAFINIL [Concomitant]
  6. HYDROCHLOROTHIAZIDE [Concomitant]
  7. AMLODIPINE [Concomitant]
  8. CHOLESTEROL PILL [Concomitant]

REACTIONS (1)
  - Brain neoplasm [None]
